FAERS Safety Report 4716918-6 (Version None)
Quarter: 2005Q3

REPORT INFORMATION
  Report Type: 
  Country: None (occurrence: None)
  Receive Date: 20050712
  Receipt Date: 20050308
  Transmission Date: 20060218
  Serious: Yes (Other)
  Sender: FDA-Public Use
  Company Number: PHEH2005US02943

PATIENT
  Age: 38 Year
  Sex: Female
  Weight: 117 kg

DRUGS (11)
  1. GLEEVEC [Suspect]
     Indication: CHRONIC MYELOID LEUKAEMIA
     Dosage: 400 MG, QD, ORAL
     Route: 048
     Dates: start: 20040409, end: 20050309
  2. BENICAR [Concomitant]
  3. HYDROCHLOROTHIAZIDE [Concomitant]
  4. XANAX [Concomitant]
  5. TRIAMCINOLONE [Concomitant]
  6. LASIX [Concomitant]
  7. PRILOSEC [Concomitant]
  8. CIPRO [Concomitant]
  9. DIFLUCAN [Concomitant]
  10. HYDROXYZINE [Concomitant]
  11. ELIDEL [Concomitant]

REACTIONS (3)
  - COUGH [None]
  - DYSPNOEA [None]
  - PLEURAL EFFUSION [None]
